FAERS Safety Report 8802166 (Version 2)
Quarter: 2015Q2

REPORT INFORMATION
  Report Type: Report from Study
  Country: US (occurrence: US)
  Receive Date: 20120921
  Receipt Date: 20150617
  Transmission Date: 20150821
  Serious: Yes (Death)
  Sender: FDA-Public Use
  Company Number: US-ROCHE-1104471

PATIENT
  Sex: Male
  Weight: 62.65 kg

DRUGS (4)
  1. AVASTIN [Suspect]
     Active Substance: BEVACIZUMAB
     Indication: MALIGNANT MELANOMA
  2. NEXAVAR [Concomitant]
     Active Substance: SORAFENIB
  3. OXALIPLATIN. [Concomitant]
     Active Substance: OXALIPLATIN
  4. AVASTIN [Suspect]
     Active Substance: BEVACIZUMAB
     Indication: METASTASES TO LUNG
     Route: 042

REACTIONS (2)
  - Death [Fatal]
  - Off label use [Unknown]
